FAERS Safety Report 5899397-5 (Version None)
Quarter: 2008Q3

REPORT INFORMATION
  Report Type: 
  Country: None (occurrence: None)
  Receive Date: 20080924
  Receipt Date: 20080915
  Transmission Date: 20090109
  Serious: Yes (Hospitalization)
  Sender: FDA-Public Use
  Company Number: JPI-P-004702

PATIENT
  Age: 31 Year
  Sex: Female
  Weight: 113.3993 kg

DRUGS (6)
  1. XYREM [Suspect]
     Indication: CATAPLEXY
     Dosage: 7.5 GM (3.75 GM, 2 IN 1 D) ,ORAL
     Route: 048
     Dates: start: 20080721
  2. XYREM [Suspect]
     Indication: NARCOLEPSY
     Dosage: 7.5 GM (3.75 GM, 2 IN 1 D) ,ORAL
     Route: 048
     Dates: start: 20080721
  3. LEVOTHYROXINE SODIUM [Concomitant]
  4. NORTRIPTYLINE HCL [Concomitant]
  5. MODAFINIL [Concomitant]
  6. DULOXETINE HYDROCHLORIDE (DULOXETINE HYDROCHLORIDE) [Concomitant]

REACTIONS (1)
  - PANCREATITIS RELAPSING [None]
